FAERS Safety Report 4472988-4 (Version None)
Quarter: 2004Q4

REPORT INFORMATION
  Report Type: 
  Country: None (occurrence: None)
  Receive Date: 20041013
  Receipt Date: 20041004
  Transmission Date: 20050328
  Serious: Yes (Life-Threatening)
  Sender: FDA-Public Use
  Company Number: US-MERCK-0410USA00507

PATIENT
  Age: 84 Year
  Sex: Male

DRUGS (3)
  1. [THERAPY UNSPECIFIED] [Concomitant]
     Route: 065
  2. [THERAPY UNSPECIFIED] [Concomitant]
     Route: 065
  3. VIOXX [Suspect]
     Indication: ARTHRITIS
     Route: 048
     Dates: start: 20000101, end: 20040901

REACTIONS (1)
  - CEREBROVASCULAR ACCIDENT [None]
